FAERS Safety Report 7910179-2 (Version None)
Quarter: 2011Q4

REPORT INFORMATION
  Report Type: 
  Country: None (occurrence: None)
  Receive Date: 20111111
  Receipt Date: 20111107
  Transmission Date: 20120403
  Serious: Yes (Other)
  Sender: FDA-Public Use
  Company Number: US-BAYER-2011-108945

PATIENT
  Age: 9 Year
  Sex: Female

DRUGS (2)
  1. PRECOSE [Suspect]
     Dosage: 100 MG, TID
     Route: 048
     Dates: end: 20111101
  2. PRECOSE [Suspect]
     Indication: TYPE 2 DIABETES MELLITUS
     Dosage: 50 MG, TID
     Route: 048
     Dates: start: 20110701

REACTIONS (4)
  - EATING DISORDER [None]
  - ORAL FUNGAL INFECTION [None]
  - DECREASED APPETITE [None]
  - DIABETES MELLITUS INADEQUATE CONTROL [None]
